FAERS Safety Report 5400033-2 (Version None)
Quarter: 2007Q3

REPORT INFORMATION
  Report Type: 
  Country: None (occurrence: None)
  Receive Date: 20070730
  Receipt Date: 20070725
  Transmission Date: 20080115
  Serious: Yes (Death)
  Sender: FDA-Public Use
  Company Number: FR-AVENTIS-200712401FR

PATIENT
  Age: 62 Year
  Sex: Female

DRUGS (9)
  1. DIANTALVIC [Suspect]
     Route: 048
     Dates: start: 20070621, end: 20070628
  2. CLAFORAN [Suspect]
     Route: 042
     Dates: start: 20070621, end: 20070628
  3. CIFLOX                             /00697201/ [Suspect]
     Route: 048
     Dates: start: 20070623, end: 20070628
  4. DURAGESIC-100 [Suspect]
     Route: 061
     Dates: start: 20070623, end: 20070628
  5. MOTILIUM [Suspect]
     Route: 048
     Dates: start: 20070620, end: 20070628
  6. AMIKLIN                            /00391001/ [Suspect]
     Dates: start: 20070625, end: 20070628
  7. FORLAX [Concomitant]
     Dates: start: 20070620
  8. TRUSOPT [Concomitant]
     Dates: start: 20070620
  9. LOVENOX [Concomitant]
     Dates: start: 20070625

REACTIONS (1)
  - SUICIDE ATTEMPT [None]
